FAERS Safety Report 5563270-2 (Version None)
Quarter: 2007Q4

REPORT INFORMATION
  Report Type: 
  Country: None (occurrence: None)
  Receive Date: 20071217
  Receipt Date: 20071212
  Transmission Date: 20080405
  Serious: Yes (Hospitalization)
  Sender: FDA-Public Use
  Company Number: FR-WYE-G00770607

PATIENT
  Age: 70 Year
  Sex: Female

DRUGS (2)
  1. EFFEXOR XR [Suspect]
     Route: 048
     Dates: start: 20070101, end: 20070101
  2. SKENAN [Concomitant]
     Indication: SCIATICA
     Route: 048

REACTIONS (2)
  - AGGRESSION [None]
  - CONFUSIONAL STATE [None]
